FAERS Safety Report 9112794 (Version 8)
Quarter: 2017Q1

REPORT INFORMATION
  Report Type: Report from Study
  Country: US (occurrence: US)
  Receive Date: 20130211
  Receipt Date: 20170215
  Transmission Date: 20170429
  Serious: Yes (Death, Other)
  Sender: FDA-Public Use
  Company Number: US-ROCHE-1187098

PATIENT

DRUGS (4)
  1. IRINOTECAN [Suspect]
     Active Substance: IRINOTECAN
     Indication: COLORECTAL CANCER METASTATIC
     Route: 065
  2. BEVACIZUMAB [Suspect]
     Active Substance: BEVACIZUMAB
     Indication: COLORECTAL CANCER METASTATIC
     Dosage: DOSE: 5 MG/KG OR 10 MG/KG
     Route: 065
  3. LEUCOVORIN. [Suspect]
     Active Substance: LEUCOVORIN
     Indication: COLORECTAL CANCER METASTATIC
     Route: 065
  4. 5-FLUOROURACIL [Suspect]
     Active Substance: FLUOROURACIL
     Indication: COLORECTAL CANCER METASTATIC
     Route: 065

REACTIONS (19)
  - Hypokalaemia [Unknown]
  - Colon cancer [Fatal]
  - Pulmonary embolism [Unknown]
  - Sepsis [Fatal]
  - Skin disorder [Unknown]
  - Nausea [Unknown]
  - Neutropenia [Unknown]
  - Dehydration [Unknown]
  - Vomiting [Unknown]
  - Infusion related reaction [Unknown]
  - Colorectal cancer metastatic [Fatal]
  - Abdominal pain [Unknown]
  - Deep vein thrombosis [Unknown]
  - Diarrhoea [Unknown]
  - Hyperglycaemia [Unknown]
  - Back pain [Unknown]
  - Hypertension [Unknown]
  - Proteinuria [Unknown]
  - Acute respiratory failure [Fatal]
